FAERS Safety Report 8815850 (Version 2)
Quarter: 2015Q1

REPORT INFORMATION
  Report Type: Spontaneous
  Country: US (occurrence: US)
  Receive Date: 20120928
  Receipt Date: 20150206
  Transmission Date: 20150721
  Serious: Yes (Other)
  Sender: FDA-Public Use
  Company Number: US-ASTRAZENECA-2012SE73259

PATIENT
  Age: 84 Year
  Sex: Male

DRUGS (2)
  1. ATACAND [Suspect]
     Active Substance: CANDESARTAN CILEXETIL
     Route: 048
  2. NEXIUM [Suspect]
     Active Substance: ESOMEPRAZOLE MAGNESIUM
     Indication: GASTRIC PH DECREASED
     Route: 048

REACTIONS (6)
  - Herpes zoster [Recovering/Resolving]
  - Malaise [Unknown]
  - Arthropathy [Unknown]
  - Glaucoma [Unknown]
  - Hypoacusis [Unknown]
  - Gait disturbance [Unknown]

NARRATIVE: CASE EVENT DATE: 201501
